FAERS Safety Report 24990378 (Version 1)
Quarter: 2025Q1

REPORT INFORMATION
  Report Type: Spontaneous
  Country: US (occurrence: None)
  Receive Date: 20250219
  Receipt Date: 20250219
  Transmission Date: 20250409
  Serious: Yes (Other)
  Sender: FDA-CTU
  Company Number: None

PATIENT
  Age: 29 Year
  Sex: Male
  Weight: 87.54 kg

DRUGS (5)
  1. RISPERIDONE [Suspect]
     Active Substance: RISPERIDONE
     Indication: Schizoaffective disorder
     Dosage: FREQUENCY : AT BEDTIME;?
     Route: 048
  2. PALIPERIDONE [Suspect]
     Active Substance: PALIPERIDONE
  3. HALOPERIDOL [Concomitant]
     Active Substance: HALOPERIDOL
  4. LITHIUM [Concomitant]
     Active Substance: LITHIUM
  5. BENZTROPINE [Concomitant]
     Active Substance: BENZTROPINE

REACTIONS (3)
  - Therapy change [None]
  - Drug ineffective [None]
  - Unevaluable event [None]

NARRATIVE: CASE EVENT DATE: 20250203
